APPROVED DRUG PRODUCT: OLOPATADINE HYDROCHLORIDE
Active Ingredient: OLOPATADINE HYDROCHLORIDE
Strength: EQ 0.2% BASE
Dosage Form/Route: SOLUTION/DROPS;OPHTHALMIC
Application: A090848 | Product #001
Applicant: BARR LABORATORIES INC
Approved: Jul 13, 2015 | RLD: No | RS: No | Type: OTC